FAERS Safety Report 7794798-2 (Version None)
Quarter: 2011Q4

REPORT INFORMATION
  Report Type: 
  Country: None (occurrence: None)
  Receive Date: 20111004
  Receipt Date: 20110930
  Transmission Date: 20120403
  Serious: No
  Sender: FDA-Public Use
  Company Number: US-PFIZER INC-2011234219

PATIENT
  Sex: Female
  Weight: 74.83 kg

DRUGS (1)
  1. ADVIL COLD AND SINUS [Suspect]
     Dosage: 200 MG, 4X/DAY
     Route: 048
     Dates: start: 20110926

REACTIONS (1)
  - CONSTIPATION [None]
